FAERS Safety Report 19317323 (Version 1)
Quarter: 2021Q2

REPORT INFORMATION
  Report Type: Spontaneous
  Country: US (occurrence: US)
  Receive Date: 20210527
  Receipt Date: 20210527
  Transmission Date: 20210717
  Serious: No
  Sender: FDA-Public Use
  Company Number: US-BIOGEN-2021BI01006875

PATIENT
  Age: 52 Year
  Sex: Male

DRUGS (1)
  1. TECFIDERA [Suspect]
     Active Substance: DIMETHYL FUMARATE
     Indication: MULTIPLE SCLEROSIS
     Route: 065
     Dates: start: 20130920

REACTIONS (6)
  - Back disorder [Unknown]
  - Diplopia [Not Recovered/Not Resolved]
  - Bradykinesia [Unknown]
  - Therapeutic product effect decreased [Unknown]
  - Vomiting [Unknown]
  - Gait inability [Unknown]

NARRATIVE: CASE EVENT DATE: 20210428
